FAERS Safety Report 10959788 (Version 3)
Quarter: 2015Q3

REPORT INFORMATION
  Report Type: Report from Study
  Country: US (occurrence: None)
  Receive Date: 20150325
  Receipt Date: 20150713
  Transmission Date: 20151125
  Serious: Yes (Other)
  Sender: FDA-Public Use
  Company Number: 2015AP007469

PATIENT
  Age: 78 Year
  Sex: Female
  Weight: 80 kg

DRUGS (23)
  1. CHOLECALCIFEROL (COLECALCIFEROL) [Concomitant]
  2. SENNA [Concomitant]
     Active Substance: SENNA LEAF\SENNOSIDES\SENNOSIDES A AND B
  3. ALBUTEROL (SALBUTAMOL) [Concomitant]
     Active Substance: ALBUTEROL
  4. BUMETANIDE (BUMETANIDE) [Concomitant]
     Active Substance: BUMETANIDE
  5. ISOSORBIDE MONONITRATE (ISOSORBIDE MONONITRATE) [Concomitant]
     Active Substance: ISOSORBIDE MONONITRATE
  6. OXYCODONE (OXYCODONE) [Concomitant]
     Active Substance: OXYCODONE
  7. MIRALAX (MACROGOL) [Concomitant]
  8. FERRIPROX [Suspect]
     Active Substance: DEFERIPRONE
     Indication: TRANSFUSION-RELATED CIRCULATORY OVERLOAD
     Route: 048
     Dates: start: 20150126, end: 20150221
  9. FERRIPROX [Suspect]
     Active Substance: DEFERIPRONE
     Indication: NEPHROGENIC ANAEMIA
     Route: 048
     Dates: start: 20150126, end: 20150221
  10. ASPIRIN (ACETYLSALICYLIC ACID) [Concomitant]
     Active Substance: ASPIRIN
  11. AGGRENOX (ACETYLSALICYLIC ACID, DIPYRIDAMOLE) [Concomitant]
  12. ROCALTROL (CALCITRIOL) [Concomitant]
  13. HYDRALAZINE (HYDRALAZINE) [Concomitant]
     Active Substance: HYDRALAZINE HYDROCHLORIDE
  14. HUMALOG [Concomitant]
     Active Substance: INSULIN LISPRO
  15. HUMULIN (INSULIN HUMAN, INSULIN HUMAN INJECTION, ISOPHANE) [Concomitant]
  16. ZANTAC [Concomitant]
     Active Substance: RANITIDINE HYDROCHLORIDE
  17. TOPROL (METOPROLOL SUCCINTATE) [Concomitant]
  18. MICRO-K (POTASSIUM CHLORIDE) [Concomitant]
  19. ALLOPURINOL (ALLOPURINOL) [Concomitant]
     Active Substance: ALLOPURINOL
  20. DULOXETINE (DULOXETINE) [Concomitant]
     Active Substance: DULOXETINE
  21. DOCUSATE SODIUM (DOCUSATE SODIUM) [Concomitant]
     Active Substance: DOCUSATE SODIUM
  22. LANSOPRAZOLE (LANSOPRAZOLE) [Concomitant]
     Active Substance: LANSOPRAZOLE
  23. LEVOTHYROXINE (LEVOTHYROXINE) [Concomitant]
     Active Substance: LEVOTHYROXINE

REACTIONS (14)
  - Wheezing [None]
  - Decreased appetite [None]
  - Lethargy [None]
  - Nausea [None]
  - Angina pectoris [None]
  - Vomiting [None]
  - Abdominal pain [None]
  - Diarrhoea [None]
  - Blood pressure systolic increased [None]
  - Heart rate irregular [None]
  - Fatigue [None]
  - Dyspnoea [None]
  - Chest pain [None]
  - Cardiac failure [None]

NARRATIVE: CASE EVENT DATE: 201501
